FAERS Safety Report 7297256-7 (Version None)
Quarter: 2011Q1

REPORT INFORMATION
  Report Type: 
  Country: None (occurrence: None)
  Receive Date: 20110216
  Receipt Date: 20110202
  Transmission Date: 20110831
  Serious: Yes (Hospitalization)
  Sender: FDA-Public Use
  Company Number: JP-CTI_01308_2011

PATIENT
  Age: 24 Month
  Sex: Male

DRUGS (1)
  1. MEIACT MS (CEFDITOREN PIVOXIL) [Suspect]
     Indication: PRODUCT USED FOR UNKNOWN INDICATION
     Dosage: DF
     Route: 048

REACTIONS (8)
  - HYPERAMMONAEMIA [None]
  - HYPOTONIA [None]
  - NASOPHARYNGITIS [None]
  - CARNITINE DEFICIENCY [None]
  - HYPOGLYCAEMIA [None]
  - CONVULSION [None]
  - ALTERED STATE OF CONSCIOUSNESS [None]
  - BLOOD CREATINE PHOSPHOKINASE INCREASED [None]
